FAERS Safety Report 25136583 (Version 1)
Quarter: 2025Q1

REPORT INFORMATION
  Report Type: Spontaneous
  Country: US (occurrence: US)
  Receive Date: 20250328
  Receipt Date: 20250328
  Transmission Date: 20250408
  Serious: Yes (Other)
  Sender: AMGEN
  Company Number: US-AMGEN-USASP2025059064

PATIENT
  Age: 65 Year
  Sex: Female

DRUGS (1)
  1. XGEVA [Suspect]
     Active Substance: DENOSUMAB
     Indication: Metastases to bone
     Dosage: UNK, QMO (TOTAL 13 INJECTIONS) (DURATION: 18 MONTHS)
     Route: 065

REACTIONS (3)
  - Lumbar vertebral fracture [Unknown]
  - Injury [Unknown]
  - Hypercalcaemia [Unknown]
